FAERS Safety Report 8834152 (Version 2)
Quarter: 2012Q4

REPORT INFORMATION
  Report Type: 
  Country: US (occurrence: US)
  Receive Date: 20121010
  Receipt Date: 20121104
  Transmission Date: 20130627
  Serious: No
  Sender: FDA-Public Use
  Company Number: US-ROXANE LABORATORIES, INC.-2012-RO-01916RO

PATIENT
  Sex: Male
  Weight: 98 kg

DRUGS (1)
  1. BUPRENORPHINE HYDROCHLORIDE [Suspect]
     Indication: DRUG DEPENDENCE
     Dosage: 16 mg
     Route: 060
     Dates: start: 201208

REACTIONS (8)
  - Rhinorrhoea [Not Recovered/Not Resolved]
  - Piloerection [Not Recovered/Not Resolved]
  - Lethargy [Not Recovered/Not Resolved]
  - Cold sweat [Not Recovered/Not Resolved]
  - Drug ineffective [Not Recovered/Not Resolved]
  - Product quality issue [Not Recovered/Not Resolved]
  - Withdrawal syndrome [Recovered/Resolved]
  - Discomfort [Recovered/Resolved]
